FAERS Safety Report 20263999 (Version 1)
Quarter: 2021Q4

REPORT INFORMATION
  Report Type: Spontaneous
  Country: US (occurrence: None)
  Receive Date: 20211230
  Receipt Date: 20211230
  Transmission Date: 20220303
  Serious: No
  Sender: FDA-Public Use
  Company Number: None

PATIENT
  Age: 61 Year
  Sex: Female
  Weight: 120.37 kg

DRUGS (2)
  1. VANCOMYCIN [Suspect]
     Active Substance: VANCOMYCIN
     Indication: Skin infection
     Dosage: 1750MG TWICE A DAY IV?
     Route: 042
     Dates: start: 20211217, end: 20211228
  2. VANCOMYCIN [Suspect]
     Active Substance: VANCOMYCIN
     Indication: Soft tissue infection

REACTIONS (3)
  - Rash [None]
  - Stomatitis [None]
  - Epistaxis [None]

NARRATIVE: CASE EVENT DATE: 20211223
